FAERS Safety Report 13496845 (Version 1)
Quarter: 2017Q2

REPORT INFORMATION
  Report Type: Spontaneous
  Country: AU (occurrence: AU)
  Receive Date: 20170428
  Receipt Date: 20170428
  Transmission Date: 20170830
  Serious: Yes (Death, Congenital Anomaly, Other)
  Sender: FDA-Public Use
  Company Number: AU-NATCO PHARMA-2017NAT00050

PATIENT

DRUGS (4)
  1. DIAZEPAM. [Suspect]
     Active Substance: DIAZEPAM
     Dosage: 5-10 MG DAILY
     Route: 064
  2. ALPRAZOLAM. [Suspect]
     Active Substance: ALPRAZOLAM
     Dosage: 1-2 MG DAILY
     Route: 064
  3. PIMOZIDE. [Suspect]
     Active Substance: PIMOZIDE
     Dosage: 1-2 MG DAILY
     Route: 064
  4. TRANYLCYPROMINE [Suspect]
     Active Substance: TRANYLCYPROMINE
     Dosage: 100-130 MG DAILY
     Route: 064

REACTIONS (7)
  - Foetal heart rate abnormal [Not Recovered/Not Resolved]
  - Dysmorphism [Not Recovered/Not Resolved]
  - Foetal exposure during pregnancy [Recovered/Resolved]
  - Atrioventricular septal defect [Not Recovered/Not Resolved]
  - Haemorrhage in pregnancy [Not Recovered/Not Resolved]
  - Placental infarction [Fatal]
  - Drug interaction [Recovered/Resolved]
